FAERS Safety Report 23845765 (Version 2)
Quarter: 2024Q2

REPORT INFORMATION
  Report Type: Spontaneous
  Country: US (occurrence: US)
  Receive Date: 20240512
  Receipt Date: 20240521
  Transmission Date: 20240716
  Serious: No
  Sender: FDA-Public Use
  Company Number: US-SA-SAC20240509001330

PATIENT
  Sex: Female

DRUGS (2)
  1. KEVZARA [Suspect]
     Active Substance: SARILUMAB
     Indication: Rheumatoid arthritis
     Dosage: 200 MG, QOW
     Route: 058
     Dates: start: 202312
  2. ORENCIA [Suspect]
     Active Substance: ABATACEPT
     Dosage: UNK

REACTIONS (7)
  - Pain [Unknown]
  - Hypersensitivity [Unknown]
  - Swollen tongue [Unknown]
  - Glossodynia [Unknown]
  - Oropharyngeal pain [Unknown]
  - Malaise [Unknown]
  - Candida infection [Unknown]
